FAERS Safety Report 12126151 (Version 4)
Quarter: 2016Q2

REPORT INFORMATION
  Report Type: Report from Study
  Country: DK (occurrence: DK)
  Receive Date: 20160229
  Receipt Date: 20160613
  Transmission Date: 20160815
  Serious: Yes (Hospitalization)
  Sender: FDA-Public Use
  Company Number: DK-ROCHE-1717352

PATIENT
  Age: 41 Year
  Sex: Female
  Weight: 56 kg

DRUGS (28)
  1. CHLORZOXAZONE. [Concomitant]
     Active Substance: CHLORZOXAZONE
     Indication: PAIN
     Route: 048
     Dates: start: 20160411
  2. NORTRIPTYLINE [Concomitant]
     Active Substance: NORTRIPTYLINE
     Indication: PERIPHERAL SENSORY NEUROPATHY
     Route: 048
     Dates: start: 20160411
  3. PREDNISOLON [Concomitant]
     Active Substance: PREDNISOLONE
     Indication: PERIPHERAL SENSORY NEUROPATHY
     Route: 048
     Dates: start: 20160406, end: 20160408
  4. TRIAZOLAM. [Concomitant]
     Active Substance: TRIAZOLAM
     Indication: INSOMNIA
     Route: 048
     Dates: start: 20160329
  5. IBUPROFEN. [Concomitant]
     Active Substance: IBUPROFEN
     Indication: PAIN
     Route: 048
     Dates: start: 20160224
  6. PREDNISOLON [Concomitant]
     Active Substance: PREDNISOLONE
     Indication: PERIPHERAL SENSORY NEUROPATHY
     Route: 048
     Dates: start: 20160311, end: 20160318
  7. PREDNISOLON [Concomitant]
     Active Substance: PREDNISOLONE
     Indication: PERIPHERAL SENSORY NEUROPATHY
     Route: 048
     Dates: start: 20160318, end: 20160331
  8. PREDNISOLON [Concomitant]
     Active Substance: PREDNISOLONE
     Indication: PERIPHERAL SENSORY NEUROPATHY
     Route: 048
     Dates: start: 20160408, end: 20160411
  9. GABAPENTIN. [Concomitant]
     Active Substance: GABAPENTIN
     Indication: PERIPHERAL SENSORY NEUROPATHY
     Route: 048
     Dates: start: 20160315, end: 20160411
  10. SELEXID (MECILLINAM/PIVMECILLINAM) [Concomitant]
     Indication: CYSTITIS
     Route: 048
     Dates: start: 20160411, end: 20160415
  11. PARACETAMOL [Concomitant]
     Active Substance: ACETAMINOPHEN
     Indication: PAIN
     Route: 048
  12. SUMATRIPTAN. [Concomitant]
     Active Substance: SUMATRIPTAN
     Indication: MIGRAINE
     Route: 048
  13. CHLORZOXAZONE. [Concomitant]
     Active Substance: CHLORZOXAZONE
     Indication: PAIN
     Route: 048
     Dates: start: 20160225, end: 20160411
  14. GABAPENTIN. [Concomitant]
     Active Substance: GABAPENTIN
     Indication: PERIPHERAL SENSORY NEUROPATHY
     Route: 048
     Dates: start: 20160315, end: 20160411
  15. METOCLOPRAMID [Concomitant]
     Active Substance: METOCLOPRAMIDE
     Indication: NAUSEA
     Route: 048
     Dates: start: 20160411
  16. ATEZOLIZUMAB [Suspect]
     Active Substance: ATEZOLIZUMAB
     Indication: RENAL CELL CARCINOMA
     Dosage: MOST RECENT DOSE PRIOR TO THE EVENT ON 09/FEB/2016
     Route: 042
     Dates: start: 20160209
  17. BEVACIZUMAB [Suspect]
     Active Substance: BEVACIZUMAB
     Indication: RENAL CELL CARCINOMA
     Dosage: MOST RECENT DOSE PRIOR TO THE EVENT ON 09/FEB/2016
     Route: 042
     Dates: start: 20160209
  18. PROPRANOLOL [Concomitant]
     Active Substance: PROPRANOLOL\PROPRANOLOL HYDROCHLORIDE
     Indication: MIGRAINE
     Route: 048
  19. OXYCODON [Concomitant]
     Active Substance: OXYCODONE
     Indication: PAIN
     Route: 048
  20. GABAPENTIN. [Concomitant]
     Active Substance: GABAPENTIN
     Indication: PERIPHERAL SENSORY NEUROPATHY
     Route: 048
     Dates: start: 20160311, end: 20160314
  21. GABAPENTIN. [Concomitant]
     Active Substance: GABAPENTIN
     Indication: PERIPHERAL SENSORY NEUROPATHY
     Route: 048
     Dates: start: 20160411
  22. LOPERAMID [Concomitant]
     Active Substance: LOPERAMIDE
     Indication: DIARRHOEA
     Route: 048
     Dates: start: 20160411
  23. PREDNISOLON [Concomitant]
     Active Substance: PREDNISOLONE
     Indication: PERIPHERAL SENSORY NEUROPATHY
     Route: 048
     Dates: start: 20160412
  24. PANTOPRAZOL [Concomitant]
     Active Substance: PANTOPRAZOLE SODIUM
     Indication: ULCER
     Route: 048
     Dates: start: 20160310
  25. AMITRIPTYLIN [Concomitant]
     Active Substance: AMITRIPTYLINE
     Indication: PERIPHERAL SENSORY NEUROPATHY
     Route: 048
     Dates: start: 20160329
  26. PREDNISOLON [Concomitant]
     Active Substance: PREDNISOLONE
     Indication: PERIPHERAL SENSORY NEUROPATHY
     Route: 048
     Dates: start: 20160331, end: 20160406
  27. ONDANSETRON [Concomitant]
     Active Substance: ONDANSETRON
     Indication: NAUSEA
     Route: 048
  28. GABAPENTIN. [Concomitant]
     Active Substance: GABAPENTIN
     Indication: PERIPHERAL SENSORY NEUROPATHY
     Route: 048
     Dates: start: 20160314, end: 20160315

REACTIONS (1)
  - Influenza like illness [Not Recovered/Not Resolved]

NARRATIVE: CASE EVENT DATE: 20160218
